FAERS Safety Report 6296314-3 (Version None)
Quarter: 2009Q3

REPORT INFORMATION
  Report Type: 
  Country: None (occurrence: None)
  Receive Date: 20090804
  Receipt Date: 20090728
  Transmission Date: 20100115
  Serious: Yes (Hospitalization, Other)
  Sender: FDA-Public Use
  Company Number: US-ASTRAZENECA-2009UW13494

PATIENT
  Age: 67 Year
  Sex: Female
  Weight: 84.4 kg

DRUGS (3)
  1. CRESTOR [Suspect]
     Route: 048
  2. PREDNISONE TAB [Concomitant]
  3. LEVAQUIN [Concomitant]

REACTIONS (7)
  - ABASIA [None]
  - ASTHENIA [None]
  - BLOOD TEST ABNORMAL [None]
  - HEMIPARESIS [None]
  - PAIN [None]
  - RHEUMATOID ARTHRITIS [None]
  - URTICARIA [None]
